FAERS Safety Report 19159040 (Version 3)
Quarter: 2021Q3

REPORT INFORMATION
  Report Type: Report from Study
  Country: US (occurrence: US)
  Receive Date: 20210420
  Receipt Date: 20210810
  Transmission Date: 20211014
  Serious: No
  Sender: FDA-Public Use
  Company Number: US-GW PHARMA-202104USGW01617

PATIENT

DRUGS (3)
  1. EPIDIOLEX [Suspect]
     Active Substance: CANNABIDIOL
     Dosage: 15 MG/KG/DAY, 650 MILLIGRAM, BID
     Route: 048
     Dates: start: 202012, end: 20210214
  2. EPIDIOLEX [Suspect]
     Active Substance: CANNABIDIOL
     Dosage: 420 MILLIGRAM, BID
     Route: 048
     Dates: start: 20210215
  3. EPIDIOLEX [Suspect]
     Active Substance: CANNABIDIOL
     Indication: PRODUCT USED FOR UNKNOWN INDICATION
     Dosage: 420 MILLIGRAM, BID
     Route: 048
     Dates: start: 202009, end: 2020

REACTIONS (3)
  - Abdominal discomfort [Unknown]
  - Abdominal pain upper [Unknown]
  - Incorrect dose administered [Unknown]
